FAERS Safety Report 9282579 (Version 1)
Quarter: 2013Q2

REPORT INFORMATION
  Report Type: Spontaneous
  Country: US (occurrence: US)
  Receive Date: 20130510
  Receipt Date: 20130510
  Transmission Date: 20140414
  Serious: Yes (Other)
  Sender: FDA-Public Use
  Company Number: PHHY2013US045881

PATIENT
  Age: 37 Year
  Sex: Female
  Weight: 88.44 kg

DRUGS (8)
  1. GILENYA [Suspect]
     Indication: MULTIPLE SCLEROSIS
     Dosage: 0.5 MG, QD
     Route: 048
     Dates: start: 20121019
  2. GILENYA [Suspect]
     Dosage: 0.5 MG, QOD
     Route: 048
  3. GILENYA [Suspect]
     Dosage: 0.5 MG, QD
     Route: 048
     Dates: end: 20130501
  4. IBUPROFEN [Concomitant]
  5. ADDERALL XR [Concomitant]
  6. CYCLOBENZAPRINE [Concomitant]
  7. CITALOPRAM [Concomitant]
  8. TOPIRAMATE [Concomitant]

REACTIONS (3)
  - Central nervous system lesion [Unknown]
  - Muscular weakness [Not Recovered/Not Resolved]
  - Drug ineffective [Unknown]
